FAERS Safety Report 17134020 (Version 1)
Quarter: 2019Q4

REPORT INFORMATION
  Report Type: Spontaneous
  Country: GB (occurrence: GB)
  Receive Date: 20191210
  Receipt Date: 20191210
  Transmission Date: 20200122
  Serious: Yes (Hospitalization)
  Sender: FDA-Public Use
  Company Number: GB-AUROBINDO-AUR-APL-2019-103963

PATIENT
  Sex: Male

DRUGS (6)
  1. DUTASTERIDE 0.5MG OR CAPS [Suspect]
     Active Substance: DUTASTERIDE
     Indication: PRODUCT USED FOR UNKNOWN INDICATION
     Dosage: 500 MICROGRAM
     Route: 065
  2. LANSOPRAZOL LICONSA [Suspect]
     Active Substance: LANSOPRAZOLE
     Indication: PRODUCT USED FOR UNKNOWN INDICATION
     Dosage: 15 MILLIGRAM (LANSOPRAZOLE 15 MG UNKNOWN)
     Route: 065
  3. ALFUZOSIN 10MG [Suspect]
     Active Substance: ALFUZOSIN
     Indication: PRODUCT USED FOR UNKNOWN INDICATION
     Dosage: 10 MILLIGRAM (ALFUNZOSIN 10 MG UNKNOWN)
     Route: 065
  4. TRAMADOL 50MG [Suspect]
     Active Substance: TRAMADOL
     Indication: PRODUCT USED FOR UNKNOWN INDICATION
     Dosage: 50 MILLIGRAM (TRAMADOL 50 MG UNKNOWN)
     Route: 065
  5. TRAMADOL. [Suspect]
     Active Substance: TRAMADOL
     Indication: PRODUCT USED FOR UNKNOWN INDICATION
     Dosage: 100 MILLIGRAM (TRAMADOL 100 MG UNKNOWN)
     Route: 065
  6. BISOPROLOL 2.5 MG [Suspect]
     Active Substance: BISOPROLOL
     Indication: PRODUCT USED FOR UNKNOWN INDICATION
     Dosage: 2.5 MILLIGRAM (BISOPROLOL 2.5 MG UNKNOWN)
     Route: 065

REACTIONS (3)
  - Drug dispensed to wrong patient [Unknown]
  - Wrong product administered [Unknown]
  - Malaise [Unknown]
